FAERS Safety Report 23830681 (Version 1)
Quarter: 2024Q2

REPORT INFORMATION
  Report Type: Spontaneous
  Country: US (occurrence: US)
  Receive Date: 20240508
  Receipt Date: 20240508
  Transmission Date: 20240716
  Serious: No
  Sender: FDA-Public Use
  Company Number: US-TEVA-VS-3183159

PATIENT
  Age: 66 Year
  Sex: Female

DRUGS (8)
  1. AUSTEDO XR [Suspect]
     Active Substance: DEUTETRABENAZINE
     Indication: Product used for unknown indication
     Dosage: QHS
     Route: 065
     Dates: start: 20240319
  2. Ibuprofen HCL [Concomitant]
  3. pramipexole dihydrochloride oral tablet [Concomitant]
  4. iron(ferrous sulfate) [Concomitant]
  5. COENZYME Q10 [Concomitant]
     Active Substance: DIETARY SUPPLEMENT\UBIDECARENONE
  6. ATORVASTATIN CALCIUM [Concomitant]
     Active Substance: ATORVASTATIN CALCIUM
  7. HYDROCHLOROTHIAZIDE\LOSARTAN POTASSIUM [Concomitant]
     Active Substance: HYDROCHLOROTHIAZIDE\LOSARTAN POTASSIUM
  8. OLANZAPINE [Concomitant]
     Active Substance: OLANZAPINE

REACTIONS (1)
  - Frustration tolerance decreased [Unknown]
